FAERS Safety Report 5643821-X (Version None)
Quarter: 2008Q1

REPORT INFORMATION
  Report Type: 
  Country: None (occurrence: None)
  Receive Date: 20080131
  Receipt Date: 20071025
  Transmission Date: 20080703
  Serious: No
  Sender: FDA-Public Use
  Company Number: 163-21880-07101551

PATIENT
  Age: 80 Year
  Sex: Female

DRUGS (10)
  1. REVLIMID [Suspect]
     Indication: MULTIPLE MYELOMA
     Dosage: 15 MG, QD X21 DAYS OFF 7 DAYS, ORAL ; ORAL
     Route: 048
     Dates: start: 20071018, end: 20070101
  2. REVLIMID [Suspect]
     Indication: MULTIPLE MYELOMA
     Dosage: 15 MG, QD X21 DAYS OFF 7 DAYS, ORAL ; ORAL
     Route: 048
     Dates: start: 20070207, end: 20071025
  3. ZOMETA [Concomitant]
  4. EFFEXOR [Concomitant]
  5. MULTI-VITAMINS [Concomitant]
  6. FOLIC ACID [Concomitant]
  7. VICODIN [Concomitant]
  8. PROCRIT [Concomitant]
  9. NEUPOGEN [Concomitant]
  10. DECADRON [Concomitant]

REACTIONS (1)
  - HAEMOGLOBIN DECREASED [None]
